FAERS Safety Report 8543029-4 (Version None)
Quarter: 2012Q3

REPORT INFORMATION
  Report Type: 
  Country: None (occurrence: None)
  Receive Date: 20120727
  Receipt Date: 20120718
  Transmission Date: 20120928
  Serious: Yes (Other)
  Sender: FDA-Public Use
  Company Number: SE-JNJFOC-20120710578

PATIENT
  Sex: Male

DRUGS (3)
  1. ARCOXIA [Concomitant]
     Route: 065
  2. DICLOFENAC [Concomitant]
     Route: 065
  3. REMICADE [Suspect]
     Indication: ANKYLOSING SPONDYLITIS
     Route: 042
     Dates: start: 20081112

REACTIONS (1)
  - THROMBOSIS [None]
